FAERS Safety Report 5091667-6 (Version None)
Quarter: 2006Q3

REPORT INFORMATION
  Report Type: 
  Country: None (occurrence: None)
  Receive Date: 20060829
  Receipt Date: 20060816
  Transmission Date: 20061208
  Serious: Yes (Hospitalization)
  Sender: FDA-Public Use
  Company Number: PHBS2006NL12354

PATIENT
  Age: 84 Year
  Sex: Male

DRUGS (4)
  1. STALEVO 100 [Suspect]
     Route: 048
  2. EXELON [Suspect]
     Route: 065
  3. OMNIC [Suspect]
     Route: 065
  4. ASCAL [Suspect]
     Route: 065

REACTIONS (3)
  - BODY TEMPERATURE DECREASED [None]
  - LOSS OF CONSCIOUSNESS [None]
  - PNEUMONIA ASPIRATION [None]
